FAERS Safety Report 7779898-5 (Version None)
Quarter: 2011Q3

REPORT INFORMATION
  Report Type: 
  Country: None (occurrence: None)
  Receive Date: 20110927
  Receipt Date: 20110803
  Transmission Date: 20111222
  Serious: No
  Sender: FDA-Public Use
  Company Number: US-MYLANLABS-2011S1016415

PATIENT
  Age: 70 Year
  Sex: Female

DRUGS (7)
  1. NIFEDIPINE [Suspect]
     Indication: BLOOD PRESSURE
     Route: 048
  2. METFORMIN HCL [Concomitant]
     Indication: DIABETES MELLITUS
     Route: 048
  3. POTASSIUM [Concomitant]
  4. PLAVIX [Concomitant]
  5. ACTOS [Concomitant]
     Indication: DIABETES MELLITUS
     Route: 048
  6. ARICEPT [Concomitant]
     Route: 048
  7. PRANDIN /01393601/ [Concomitant]
     Indication: DIABETES MELLITUS

REACTIONS (1)
  - HEADACHE [None]
